FAERS Safety Report 4843750-5 (Version None)
Quarter: 2005Q4

REPORT INFORMATION
  Report Type: 
  Country: None (occurrence: None)
  Receive Date: 20051202
  Receipt Date: 20051128
  Transmission Date: 20060501
  Serious: Yes (Hospitalization, Other)
  Sender: FDA-Public Use
  Company Number: 2005AC01880

PATIENT
  Age: 16701 Day
  Sex: Female
  Weight: 90 kg

DRUGS (4)
  1. IRESSA [Suspect]
     Indication: NON-SMALL CELL LUNG CANCER
     Route: 048
     Dates: start: 20050323, end: 20050920
  2. DEXAMETHASONE [Concomitant]
     Route: 048
  3. DURAGESIC-100 [Concomitant]
     Indication: PAIN
     Route: 058
  4. FRAXIPARINE [Concomitant]
     Indication: THROMBOSIS
     Dates: start: 20050920

REACTIONS (3)
  - ANAEMIA [None]
  - SKIN LESION [None]
  - THROMBOCYTOPENIA [None]
